FAERS Safety Report 8264607-6 (Version None)
Quarter: 2012Q2

REPORT INFORMATION
  Report Type: 
  Country: None (occurrence: None)
  Receive Date: 20120404
  Receipt Date: 20120326
  Transmission Date: 20120825
  Serious: Yes (Hospitalization, Other)
  Sender: FDA-Public Use
  Company Number: 2012MA003993

PATIENT
  Age: 54 Year
  Sex: Female

DRUGS (3)
  1. LISINOPRIL [Suspect]
     Dosage: 5 MG;QD
  2. SIMVASTATIN [Suspect]
     Dosage: 20 MG;QD
  3. METFORMIN HCL [Suspect]
     Dosage: 1000 MG;BID

REACTIONS (13)
  - LACTIC ACIDOSIS [None]
  - HYPOTHERMIA [None]
  - NAUSEA [None]
  - VOMITING [None]
  - RESPIRATORY RATE INCREASED [None]
  - BLOOD GLUCOSE DECREASED [None]
  - ESCHERICHIA URINARY TRACT INFECTION [None]
  - HAEMODYNAMIC INSTABILITY [None]
  - SYNCOPE [None]
  - RESPIRATORY DISTRESS [None]
  - RENAL FAILURE ACUTE [None]
  - BLOOD PRESSURE DECREASED [None]
  - ASTHENIA [None]
